FAERS Safety Report 18963490 (Version 1)
Quarter: 2021Q1

REPORT INFORMATION
  Report Type: Spontaneous
  Country: US (occurrence: US)
  Receive Date: 20210303
  Receipt Date: 20210303
  Transmission Date: 20210420
  Serious: Yes (Other)
  Sender: FDA-Public Use
  Company Number: None

PATIENT
  Age: 62 Year
  Sex: Female
  Weight: 72.9 kg

DRUGS (12)
  1. POTASSIUM [Concomitant]
     Active Substance: POTASSIUM
  2. TRAMADOL. [Concomitant]
     Active Substance: TRAMADOL
  3. COMPOUNDED ESTROGEN/PROGESTERONE [Concomitant]
  4. NAC [Concomitant]
  5. AREDS 2 PLUS [Concomitant]
  6. NUKALA INJECTION [Concomitant]
  7. SPIRONOLACTONE WITH HCTZ [Concomitant]
     Active Substance: HYDROCHLOROTHIAZIDE\SPIRONOLACTONE
  8. MULTI VITAMIN [Concomitant]
     Active Substance: VITAMINS
  9. REPATHA [Suspect]
     Active Substance: EVOLOCUMAB
     Indication: HYPERCHOLESTEROLAEMIA
     Dates: start: 20200314, end: 20210201
  10. ATENOLOL. [Concomitant]
     Active Substance: ATENOLOL
  11. HYDROXYZINE [Concomitant]
     Active Substance: HYDROXYZINE HYDROCHLORIDE
  12. SINGULAIR [Concomitant]
     Active Substance: MONTELUKAST SODIUM

REACTIONS (5)
  - Back pain [None]
  - Myalgia [None]
  - Gait inability [None]
  - Arthralgia [None]
  - Viral infection [None]

NARRATIVE: CASE EVENT DATE: 20210201
